FAERS Safety Report 5814778-3 (Version None)
Quarter: 2008Q3

REPORT INFORMATION
  Report Type: 
  Country: None (occurrence: None)
  Receive Date: 20080718
  Receipt Date: 20080709
  Transmission Date: 20090109
  Serious: Yes (Hospitalization)
  Sender: FDA-Public Use
  Company Number: PHHO2008AU08625

PATIENT
  Sex: Male
  Weight: 86.2 kg

DRUGS (6)
  1. STARLIX DJN+TAB [Suspect]
     Indication: GLUCOSE TOLERANCE IMPAIRED
     Dosage: 60 MG, UNK
     Dates: start: 20020924
  2. STARLIX DJN+TAB [Suspect]
     Dosage: UNK
  3. PLACEBO OR VALSARTAN [Suspect]
     Indication: CARDIOVASCULAR DISORDER
     Dosage: UNK
     Dates: start: 20020924
  4. OGEN [Concomitant]
     Indication: HOT FLUSH
     Dosage: UNK
  5. CATAPRES [Concomitant]
     Indication: HOT FLUSH
  6. ASPIRIN [Concomitant]
     Indication: PROPHYLAXIS

REACTIONS (1)
  - PSORIASIS [None]
